FAERS Safety Report 10210063 (Version 2)
Quarter: 2014Q2

REPORT INFORMATION
  Report Type: Spontaneous
  Country: US (occurrence: US)
  Receive Date: 20140602
  Receipt Date: 20140602
  Transmission Date: 20141212
  Serious: No
  Sender: FDA-Public Use
  Company Number: US-MYLANLABS-2013S1016437

PATIENT
  Age: 69 Year
  Sex: Female
  Weight: 43.09 kg

DRUGS (4)
  1. HYDROXYCHLOROQUINE SULFATE TABLETS, USP [Suspect]
     Indication: RHEUMATOID ARTHRITIS
     Route: 048
     Dates: start: 20130517
  2. LEVOTHYROXINE [Concomitant]
     Indication: HYPOTHYROIDISM
     Route: 048
  3. SINGULAIR [Concomitant]
     Indication: HYPERSENSITIVITY
  4. RESTASIS [Concomitant]
     Indication: HYPERSENSITIVITY
     Dosage: 1 GTT OU QD
     Route: 047

REACTIONS (1)
  - Conjunctivitis [Not Recovered/Not Resolved]
